FAERS Safety Report 12288411 (Version 2)
Quarter: 2016Q2

REPORT INFORMATION
  Report Type: Spontaneous
  Country: VE (occurrence: VE)
  Receive Date: 20160420
  Receipt Date: 20160502
  Transmission Date: 20160815
  Serious: Yes (Other)
  Sender: FDA-Public Use
  Company Number: PHHY2016VE053159

PATIENT
  Sex: Female

DRUGS (7)
  1. CARVEDILOL. [Concomitant]
     Active Substance: CARVEDILOL
     Indication: BLOOD PRESSURE ABNORMAL
     Dosage: 6.25 MG, QD
     Route: 065
     Dates: start: 2015
  2. DEFLAZACORT [Concomitant]
     Active Substance: DEFLAZACORT
     Indication: PAIN
     Dosage: 6 MG, UNK (ON ALTERNATE DAYS)
     Route: 065
  3. LYRICA [Concomitant]
     Active Substance: PREGABALIN
     Indication: PRODUCT USED FOR UNKNOWN INDICATION
     Dosage: 300 MG, QD
     Route: 065
  4. SOMAZINA [Concomitant]
     Active Substance: CITICOLINE
     Indication: ANTIOXIDANT THERAPY
     Dosage: 1000 MG, QD
     Route: 065
     Dates: start: 2014
  5. PLAQUINOL [Concomitant]
     Active Substance: HYDROXYCHLOROQUINE SULFATE
     Indication: ARTHRITIS
     Dosage: 200 OT, QD
     Route: 065
     Dates: start: 2015
  6. SOMAZINA [Concomitant]
     Active Substance: CITICOLINE
     Dosage: 500 MG, QD
     Route: 065
     Dates: start: 2014
  7. TRILEPTAL [Suspect]
     Active Substance: OXCARBAZEPINE
     Indication: SEIZURE
     Dosage: 600 MG, QD
     Route: 048
     Dates: start: 2014

REACTIONS (5)
  - Syncope [Unknown]
  - Drooling [Unknown]
  - Somnolence [Unknown]
  - Vomiting [Unknown]
  - Gastric disorder [Unknown]
